FAERS Safety Report 16744770 (Version 1)
Quarter: 2019Q4

REPORT INFORMATION
  Report Type: Spontaneous
  Country: US (occurrence: US)
  Receive Date: 20190826
  Receipt Date: 20190826
  Transmission Date: 20200122
  Serious: Yes (Other)
  Sender: FDA-Public Use
  Company Number: None

PATIENT
  Age: 68 Year
  Sex: Female
  Weight: 54 kg

DRUGS (26)
  1. MYRBETRIQ [Concomitant]
     Active Substance: MIRABEGRON
  2. CEPHALEXIN. [Concomitant]
     Active Substance: CEPHALEXIN
  3. XYZAL [Concomitant]
     Active Substance: LEVOCETIRIZINE DIHYDROCHLORIDE
  4. FENOFIBRATE. [Concomitant]
     Active Substance: FENOFIBRATE
  5. MEGA RED [Concomitant]
  6. FIBERCON [Concomitant]
     Active Substance: CALCIUM POLYCARBOPHIL
  7. VALSARTAN AND HYDROCHLOROTHIAZIDE [Suspect]
     Active Substance: HYDROCHLOROTHIAZIDE\VALSARTAN
     Indication: HYPERTENSION
     Dosage: ?          QUANTITY:1 TABLET(S);?
     Route: 048
     Dates: start: 20190814, end: 20190819
  8. MULTI-VIT [Concomitant]
     Active Substance: VITAMINS
  9. VITAMIN D3 [Concomitant]
     Active Substance: CHOLECALCIFEROL
  10. BIOTIN [Concomitant]
     Active Substance: BIOTIN
  11. LEVOTHYROXINE. [Concomitant]
     Active Substance: LEVOTHYROXINE
  12. GLUCOSAMINE CHOND [Concomitant]
  13. OMEGA 3 [Concomitant]
     Active Substance: OMEGA-3 FATTY ACIDS
  14. SUPER B COMPLEX [Concomitant]
     Active Substance: CYANOCOBALAMIN\DEXPANTHENOL\NIACINAMIDE\PYRIDOXINE HYDROCHLORIDE\RIBOFLAVIN 5^-PHOSPHATE SODIUM\THIAMINE HYDROCHLORIDE\VITAMIN B COMPLEX
  15. MIRALAX [Concomitant]
     Active Substance: POLYETHYLENE GLYCOL 3350
  16. CELECOXIB. [Concomitant]
     Active Substance: CELECOXIB
  17. VALSARTAN HCTZ [Concomitant]
     Active Substance: HYDROCHLOROTHIAZIDE\VALSARTAN
  18. METHOTREXATE. [Concomitant]
     Active Substance: METHOTREXATE
  19. PROBIOTIC [Concomitant]
     Active Substance: PROBIOTICS NOS
  20. ADVIL [Concomitant]
     Active Substance: IBUPROFEN
  21. GABAPENTIN. [Concomitant]
     Active Substance: GABAPENTIN
  22. COENZYME Q10 [Concomitant]
     Active Substance: UBIDECARENONE
  23. ATORVASTATIN [Concomitant]
     Active Substance: ATORVASTATIN
  24. FOLIC ACID. [Concomitant]
     Active Substance: FOLIC ACID
  25. MAGNESIUM [Concomitant]
     Active Substance: MAGNESIUM
  26. CALCIUM [Concomitant]
     Active Substance: CALCIUM

REACTIONS (3)
  - Product substitution issue [None]
  - Hypotension [None]
  - Fatigue [None]

NARRATIVE: CASE EVENT DATE: 20190819
